FAERS Safety Report 11902897 (Version 1)
Quarter: 2016Q1

REPORT INFORMATION
  Report Type: Spontaneous
  Country: BR (occurrence: BR)
  Receive Date: 20160108
  Receipt Date: 20160108
  Transmission Date: 20160526
  Serious: Yes (Other)
  Sender: FDA-Public Use
  Company Number: BR-ELI_LILLY_AND_COMPANY-BR201512002655

PATIENT
  Age: 51 Year
  Sex: Male
  Weight: 87 kg

DRUGS (2)
  1. HUMULIN N [Suspect]
     Active Substance: INSULIN HUMAN
     Indication: DIABETES MELLITUS
     Dosage: UNK, BID
     Route: 058
     Dates: start: 2011
  2. HUMULIN N [Suspect]
     Active Substance: INSULIN HUMAN
     Dosage: UNK, BID
     Route: 058

REACTIONS (5)
  - Coma [Unknown]
  - Fear of injection [Unknown]
  - Blood glucose increased [Unknown]
  - Injection site pain [Unknown]
  - Syncope [Unknown]

NARRATIVE: CASE EVENT DATE: 20151228
